FAERS Safety Report 6011510-8 (Version None)
Quarter: 2008Q4

REPORT INFORMATION
  Report Type: 
  Country: None (occurrence: None)
  Receive Date: 20081218
  Receipt Date: 19960923
  Transmission Date: 20090506
  Serious: Yes (Death, Hospitalization)
  Sender: FDA-Public Use
  Company Number: FR-ROCHE-68244

PATIENT
  Sex: Male
  Weight: 58 kg

DRUGS (6)
  1. ROACCUTANE [Suspect]
     Indication: DRUG USE FOR UNKNOWN INDICATION
     Route: 048
     Dates: start: 19960606, end: 19960821
  2. NSAID [Concomitant]
  3. BELUSTINE [Concomitant]
     Route: 048
     Dates: start: 19960707, end: 19960708
  4. DEPAKENE [Concomitant]
     Indication: CONVULSION
     Route: 048
     Dates: start: 19960606, end: 19960819
  5. CHRONO INDOCID [Concomitant]
     Route: 048
     Dates: start: 19960606, end: 19960821
  6. VEHEM [Concomitant]
     Route: 042
     Dates: start: 19960707, end: 19960708

REACTIONS (5)
  - DEATH [None]
  - DYSPNOEA [None]
  - HYPOXIA [None]
  - PYREXIA [None]
  - TACHYCARDIA [None]
